FAERS Safety Report 5043616-4 (Version None)
Quarter: 2006Q3

REPORT INFORMATION
  Report Type: 
  Country: None (occurrence: None)
  Receive Date: 20060706
  Receipt Date: 20060425
  Transmission Date: 20061208
  Serious: Yes (Hospitalization)
  Sender: FDA-Public Use
  Company Number: PHRM2006FR01447

PATIENT
  Age: 65 Year
  Sex: Female

DRUGS (4)
  1. EFFERALGAN [Concomitant]
     Dosage: UNK, PRN
  2. LEVOTHYROX [Suspect]
     Indication: HYPOTHYROIDISM
     Dosage: 100 UG, QD
     Route: 048
     Dates: start: 20000912
  3. OGAST [Suspect]
     Indication: GASTRITIS
     Dosage: 15 MG, QD
     Route: 048
     Dates: start: 20050729, end: 20060405
  4. COTAREG [Suspect]
     Indication: HYPERTENSION
     Dosage: 1 DF, QD
     Route: 048
     Dates: start: 20031104, end: 20060424

REACTIONS (5)
  - ANAEMIA [None]
  - ASTHENIA [None]
  - BONE MARROW MYELOGRAM ABNORMAL [None]
  - MYELOID LEUKAEMIA [None]
  - THROMBOCYTOPENIA [None]
